FAERS Safety Report 24601481 (Version 1)
Quarter: 2024Q4

REPORT INFORMATION
  Report Type: Spontaneous
  Country: US (occurrence: US)
  Receive Date: 20241111
  Receipt Date: 20241111
  Transmission Date: 20250115
  Serious: Yes (Hospitalization, Other)
  Sender: ENDO
  Company Number: US-ENDO USA, INC.-2024-050609

PATIENT
  Age: 58 Year
  Sex: Female

DRUGS (12)
  1. TESTOPEL [Suspect]
     Active Substance: TESTOSTERONE
     Indication: Product used for unknown indication
     Dosage: UNK UNKNOWN, UNKNOWN
     Route: 065
  2. TESTOPEL [Suspect]
     Active Substance: TESTOSTERONE
     Indication: Product used for unknown indication
     Dosage: UNK UNKNOWN, UNKNOWN
     Route: 065
  3. TESTOPEL [Suspect]
     Active Substance: TESTOSTERONE
     Indication: Product used for unknown indication
     Dosage: UNK UNKNOWN, UNKNOWN
     Route: 065
  4. TESTOPEL [Suspect]
     Active Substance: TESTOSTERONE
     Dosage: UNK UNKNOWN, UNKNOWN (SUBSEQUENT RE-ADMINISTRATION)
     Route: 065
  5. TESTOPEL [Suspect]
     Active Substance: TESTOSTERONE
     Dosage: UNK UNKNOWN, UNKNOWN (SUBSEQUENT RE-ADMINISTRATION)
     Route: 065
  6. TESTOPEL [Suspect]
     Active Substance: TESTOSTERONE
     Dosage: UNK UNKNOWN, UNKNOWN (SUBSEQUENT RE-ADMINISTRATION)
     Route: 065
  7. TESTOPEL [Suspect]
     Active Substance: TESTOSTERONE
     Dosage: UNK UNKNOWN, UNKNOWN (INCREASE DOSAGE)
     Route: 065
  8. TESTOPEL [Suspect]
     Active Substance: TESTOSTERONE
     Dosage: UNK UNKNOWN, UNKNOWN (INCREASE DOSAGE)
     Route: 065
  9. TESTOPEL [Suspect]
     Active Substance: TESTOSTERONE
     Dosage: UNK UNKNOWN, UNKNOWN (INCREASE DOSAGE)
     Route: 065
  10. TESTOPEL [Suspect]
     Active Substance: TESTOSTERONE
     Dosage: UNK UNKNOWN, UNKNOWN (REDUCED DOSAGE AFTER 1 YEAR BREAK)
     Route: 065
  11. TESTOPEL [Suspect]
     Active Substance: TESTOSTERONE
     Dosage: UNK UNKNOWN, UNKNOWN (REDUCED DOSAGE AFTER 1 YEAR BREAK)
     Route: 065
  12. TESTOPEL [Suspect]
     Active Substance: TESTOSTERONE
     Dosage: UNK UNKNOWN, UNKNOWN (REDUCED DOSAGE AFTER 1 YEAR BREAK)
     Route: 065

REACTIONS (7)
  - Agitation [Unknown]
  - Insomnia [Unknown]
  - Delusion [Unknown]
  - Self-injurious ideation [Unknown]
  - Blood testosterone increased [Unknown]
  - Anxiety [Unknown]
  - Off label use [Unknown]
